FAERS Safety Report 11383416 (Version 2)
Quarter: 2016Q2

REPORT INFORMATION
  Report Type: Spontaneous
  Country: FR (occurrence: FR)
  Receive Date: 20150814
  Receipt Date: 20160401
  Transmission Date: 20160815
  Serious: Yes (Other)
  Sender: FDA-Public Use
  Company Number: FR-ASTRAZENECA-2015SE77661

PATIENT
  Age: 73 Year
  Sex: Male

DRUGS (6)
  1. VESICARE [Suspect]
     Active Substance: SOLIFENACIN SUCCINATE
     Route: 048
  2. YERVOY [Suspect]
     Active Substance: IPILIMUMAB
     Dosage: 5 MG/ML, 235 MG EVERY THREE WEEKS
     Route: 042
     Dates: start: 20150420, end: 20150622
  3. LYRICA [Suspect]
     Active Substance: PREGABALIN
     Route: 048
  4. CRESTOR [Suspect]
     Active Substance: ROSUVASTATIN CALCIUM
     Route: 048
  5. ALTEIS [Suspect]
     Active Substance: OLMESARTAN MEDOXOMIL
     Route: 048
     Dates: end: 201506
  6. ATENOLOL. [Suspect]
     Active Substance: ATENOLOL
     Route: 048

REACTIONS (2)
  - Interstitial lung disease [Recovered/Resolved with Sequelae]
  - Lymphangitis [Unknown]
